FAERS Safety Report 6645316-3 (Version None)
Quarter: 2010Q1

REPORT INFORMATION
  Report Type: 
  Country: None (occurrence: None)
  Receive Date: 20100322
  Receipt Date: 20100317
  Transmission Date: 20100710
  Serious: Yes (Hospitalization)
  Sender: FDA-Public Use
  Company Number: NL-ALLERGAN-1003618US

PATIENT
  Age: 24 Year
  Sex: Female

DRUGS (1)
  1. BOTOX [Suspect]
     Indication: SALIVARY HYPERSECRETION
     Dosage: 110 UNITS, SINGLE
     Dates: start: 20091224, end: 20091224

REACTIONS (1)
  - DYSPHAGIA [None]
